FAERS Safety Report 10028460 (Version 2)
Quarter: 2016Q3

REPORT INFORMATION
  Report Type: Spontaneous
  Country: PL (occurrence: PL)
  Receive Date: 20140321
  Receipt Date: 20160801
  Transmission Date: 20161108
  Serious: Yes (Death, Other)
  Sender: FDA-Public Use
  Company Number: PL-BRISTOL-MYERS SQUIBB COMPANY-20554291

PATIENT
  Age: 54 Year
  Sex: Male

DRUGS (1)
  1. METFORMIN HYDROCHLORIDE. [Suspect]
     Active Substance: METFORMIN HYDROCHLORIDE
     Indication: PRODUCT USED FOR UNKNOWN INDICATION
     Dosage: PILLULES;100
     Route: 048

REACTIONS (4)
  - Lactic acidosis [Fatal]
  - Multiple organ dysfunction syndrome [Fatal]
  - Completed suicide [Fatal]
  - Intentional overdose [Fatal]
